FAERS Safety Report 9519092 (Version 1)
Quarter: 2013Q3

REPORT INFORMATION
  Report Type: Spontaneous
  Country: US (occurrence: US)
  Receive Date: 20130912
  Receipt Date: 20130912
  Transmission Date: 20140515
  Serious: Yes (Death)
  Sender: FDA-Public Use
  Company Number: US-LUNDBECK-DKLU1093504

PATIENT
  Sex: 0

DRUGS (2)
  1. SABRIL (TABLET) [Suspect]
     Indication: DRUG DEPENDENCE
     Route: 048
  2. COCAINE [Suspect]
     Indication: DEPENDENCE

REACTIONS (1)
  - Toxicity to various agents [Fatal]
